FAERS Safety Report 6199459-1 (Version None)
Quarter: 2009Q2

REPORT INFORMATION
  Report Type: 
  Country: None (occurrence: None)
  Receive Date: 20090522
  Receipt Date: 20090513
  Transmission Date: 20091009
  Serious: Yes (Other)
  Sender: FDA-Public Use
  Company Number: BR-PFIZER INC-2009213219

PATIENT
  Age: 45 Year

DRUGS (4)
  1. MARAVIROC [Suspect]
     Indication: HIV INFECTION
     Dosage: 150 MG, 2X/DAY
     Route: 048
     Dates: start: 20071226, end: 20090513
  2. DIDANOSINE [Concomitant]
     Dosage: UNK
     Route: 048
     Dates: start: 20071226
  3. TENOFOVIR [Concomitant]
     Dosage: UNK
     Route: 048
     Dates: start: 20071226
  4. LOPINAVIR [Concomitant]
     Dosage: UNK
     Route: 048
     Dates: start: 20071226

REACTIONS (1)
  - URETHRAL NEOPLASM [None]
